FAERS Safety Report 7712628-1 (Version None)
Quarter: 2011Q3

REPORT INFORMATION
  Report Type: 
  Country: None (occurrence: None)
  Receive Date: 20110826
  Receipt Date: 20110822
  Transmission Date: 20111222
  Serious: Yes (Death, Other)
  Sender: FDA-Public Use
  Company Number: FR-CELGENEUS-056-21880-11031729

PATIENT
  Sex: Female

DRUGS (5)
  1. REVLIMID [Suspect]
     Dosage: 15 MILLIGRAM
     Route: 048
     Dates: start: 20100428, end: 20100623
  2. CAMPATH [Concomitant]
     Route: 065
     Dates: start: 20091101, end: 20100401
  3. EPOGEN [Concomitant]
     Route: 065
  4. NEUPOGEN [Concomitant]
     Route: 065
  5. CYCLOPHOSPHAMIDE [Concomitant]
     Dosage: 20 MILLIGRAM
     Route: 065

REACTIONS (1)
  - B-CELL LYMPHOMA [None]
